FAERS Safety Report 15657303 (Version 1)
Quarter: 2018Q4

REPORT INFORMATION
  Report Type: Spontaneous
  Country: FR (occurrence: FR)
  Receive Date: 20181126
  Receipt Date: 20181126
  Transmission Date: 20190205
  Serious: Yes (Death, Other)
  Sender: FDA-Public Use
  Company Number: FR-SAKK-2018SA172758AA

PATIENT
  Age: 81 Year
  Sex: Male
  Weight: 64 kg

DRUGS (1)
  1. LOVENOX [Suspect]
     Active Substance: ENOXAPARIN SODIUM
     Indication: CIRCULATING ANTICOAGULANT
     Route: 058
     Dates: start: 20180512, end: 20180613

REACTIONS (2)
  - Subdural haematoma [Fatal]
  - Death [Fatal]

NARRATIVE: CASE EVENT DATE: 20180613
